FAERS Safety Report 8803354 (Version 2)
Quarter: 2012Q4

REPORT INFORMATION
  Report Type: Report from Study
  Country: JP (occurrence: JP)
  Receive Date: 20120924
  Receipt Date: 20121026
  Transmission Date: 20130627
  Serious: Yes (Death)
  Sender: FDA-Public Use
  Company Number: JP-B.I. PHARMACEUTICALS,INC./RIDGEFIELD-2012-BP-23181NB

PATIENT
  Age: 63 Year
  Sex: Male
  Weight: 63.3 kg

DRUGS (12)
  1. MICAMLO COMBINATION [Suspect]
     Indication: HYPERTENSION
     Route: 048
     Dates: start: 20110707, end: 20120618
  2. CARDENALIN [Concomitant]
     Indication: HYPERTENSION
     Dosage: 1 mg
     Route: 048
     Dates: end: 20120618
  3. SAPRESTA [Concomitant]
     Indication: HYPERTENSION
     Dosage: 1 g
     Route: 048
     Dates: end: 20120618
  4. TANATRIL [Concomitant]
     Indication: HYPERTENSION
     Dosage: 10 mg
     Route: 048
     Dates: end: 20120618
  5. NU-LOTAN [Concomitant]
     Indication: HYPERTENSION
     Dosage: 25 mg
     Route: 048
     Dates: end: 20120618
  6. NORVASC [Concomitant]
     Indication: HYPERTENSION
     Dosage: 5 mg
     Route: 048
     Dates: end: 20120618
  7. GLUFAST [Concomitant]
     Dosage: 10 mg
     Route: 048
     Dates: end: 20120618
  8. ANTEBATE:OINTMENT [Concomitant]
     Route: 065
     Dates: end: 20120618
  9. KERATINAMIN [Concomitant]
     Route: 065
     Dates: end: 20120618
  10. KALIMATE [Concomitant]
     Dosage: 10.8 g
     Route: 048
     Dates: end: 20120618
  11. CALTAN [Concomitant]
     Route: 048
     Dates: end: 20120618
  12. DOPS [Concomitant]
     Indication: PROPHYLAXIS
     Dosage: 200 mg
     Route: 048
     Dates: end: 20120618

REACTIONS (1)
  - Cardiac failure [Fatal]
